FAERS Safety Report 9587986 (Version 1)
Quarter: 2013Q4

REPORT INFORMATION
  Report Type: Spontaneous
  Country: US (occurrence: US)
  Receive Date: 20131003
  Receipt Date: 20131003
  Transmission Date: 20140711
  Serious: No
  Sender: FDA-Public Use
  Company Number: US-AMGEN-USASP2012067602

PATIENT
  Age: 57 Year
  Sex: Female

DRUGS (11)
  1. ENBREL [Suspect]
     Indication: RHEUMATOID ARTHRITIS
     Dosage: 50 MG WEEKLY
     Route: 058
     Dates: start: 20120927
  2. CYMBALTA [Concomitant]
     Dosage: 60 MG, QD
     Route: 048
  3. NORCO [Concomitant]
     Dosage: 5-325 TAB, PRN
     Route: 048
  4. XANAX XR [Concomitant]
     Dosage: 0.5 MG, QD
     Route: 048
  5. PLAQUENIL                          /00072602/ [Concomitant]
     Dosage: 200 MG
  6. AMBIEN [Concomitant]
     Dosage: 10 MG, QHS
     Route: 048
  7. ADDERALL [Concomitant]
     Dosage: 30 MG, QD
  8. VIVELLE-DOT [Concomitant]
     Dosage: 0.0375 MG PATCH 2 X PER WEEK
  9. GABAPENTIN [Concomitant]
     Dosage: 600 MG, TID
     Route: 048
  10. PREVACID [Concomitant]
     Dosage: DR 30
  11. ERGOCALCIFEROL [Concomitant]
     Dosage: 2 XWEEK (ORAL SOLUTION)
     Route: 048

REACTIONS (6)
  - Dizziness [Not Recovered/Not Resolved]
  - Fatigue [Not Recovered/Not Resolved]
  - Muscular weakness [Not Recovered/Not Resolved]
  - Oedema peripheral [Not Recovered/Not Resolved]
  - Joint swelling [Not Recovered/Not Resolved]
  - Tremor [Not Recovered/Not Resolved]
